FAERS Safety Report 10053369 (Version 2)
Quarter: 2014Q2

REPORT INFORMATION
  Report Type: Spontaneous
  Country: DE (occurrence: DE)
  Receive Date: 20140402
  Receipt Date: 20140402
  Transmission Date: 20141212
  Serious: Yes (Hospitalization)
  Sender: FDA-Public Use
  Company Number: DE-TEVA-466954GER

PATIENT
  Age: 80 Year
  Sex: Female

DRUGS (3)
  1. ENALAPRIL [Suspect]
  2. BISOPROLOL [Interacting]
  3. CLONIDINE [Interacting]

REACTIONS (5)
  - Blood pressure abnormal [Unknown]
  - Food interaction [Unknown]
  - Nausea [Unknown]
  - Abdominal pain [Unknown]
  - Muscle spasms [Unknown]
